FAERS Safety Report 8805293 (Version 1)
Quarter: 2012Q4

REPORT INFORMATION
  Report Type: 
  Country: DE (occurrence: DE)
  Receive Date: 20120924
  Receipt Date: 20120924
  Transmission Date: 20130627
  Serious: Yes (Death, Other)
  Sender: FDA-Public Use
  Company Number: PHHY2012DE082068

PATIENT
  Age: 37 Year
  Sex: Male

DRUGS (6)
  1. AZATHIOPRINE [Suspect]
     Indication: HEART TRANSPLANT
     Dosage: UNK
  2. CYCLOPHOSPHAMIDE [Suspect]
     Indication: BURKITT^S LYMPHOMA STAGE IV
     Dosage: 200 mg/m2, from day 1-5
  3. DOXORUBICIN [Suspect]
     Indication: BURKITT^S LYMPHOMA STAGE IV
     Route: 037
  4. VINCRISTINE [Suspect]
     Indication: BURKITT^S LYMPHOMA STAGE IV
  5. PREDNISOLONE [Suspect]
     Indication: BURKITT^S LYMPHOMA STAGE IV
  6. CICLOSPORIN [Suspect]
     Indication: HEART TRANSPLANT
     Dosage: 300 mg, per day

REACTIONS (6)
  - Pneumonia [Fatal]
  - Burkitt^s lymphoma stage IV [Unknown]
  - Flank pain [Unknown]
  - Epstein-Barr virus infection [Unknown]
  - Meningeal neoplasm [Unknown]
  - Disease progression [Unknown]
